FAERS Safety Report 8549521-0 (Version None)
Quarter: 2012Q3

REPORT INFORMATION
  Report Type: 
  Country: None (occurrence: None)
  Receive Date: 20120730
  Receipt Date: 20120726
  Transmission Date: 20120928
  Serious: Yes (Hospitalization)
  Sender: FDA-Public Use
  Company Number: IT-PFIZER INC-2012162085

PATIENT
  Age: 28 Year
  Sex: Male

DRUGS (2)
  1. ANTABUSE DISPERGESSE [Concomitant]
     Dosage: HALF TABLET
     Route: 048
  2. XANAX [Suspect]
     Indication: INTENTIONAL OVERDOSE
     Dosage: 30 DF, TOTAL
     Route: 048
     Dates: start: 20120610, end: 20120611

REACTIONS (3)
  - BRADYKINESIA [None]
  - OVERDOSE [None]
  - BRADYPHRENIA [None]
